FAERS Safety Report 6877755-X (Version None)
Quarter: 2010Q3

REPORT INFORMATION
  Report Type: 
  Country: None (occurrence: None)
  Receive Date: 20100727
  Receipt Date: 20100629
  Transmission Date: 20110219
  Serious: No
  Sender: FDA-Public Use
  Company Number: US-ABBOTT-10P-163-0655021-00

PATIENT
  Sex: Female
  Weight: 55.842 kg

DRUGS (1)
  1. SYNTHROID [Suspect]
     Indication: RADIOTHERAPY TO THYROID
     Dates: start: 20090101

REACTIONS (1)
  - PLATELET COUNT DECREASED [None]
